FAERS Safety Report 13580640 (Version 1)
Quarter: 2017Q2

REPORT INFORMATION
  Report Type: Spontaneous
  Country: US (occurrence: US)
  Receive Date: 20170525
  Receipt Date: 20170525
  Transmission Date: 20170830
  Serious: Yes (Hospitalization, Other)
  Sender: FDA-Public Use
  Company Number: US-ASTRAZENECA-2017SE53409

PATIENT
  Sex: Female
  Weight: 45.4 kg

DRUGS (6)
  1. HUMALOG [Concomitant]
     Active Substance: INSULIN LISPRO
     Indication: TYPE 1 DIABETES MELLITUS
     Dosage: DAILY
     Route: 058
     Dates: start: 1999
  2. IRESSA [Suspect]
     Active Substance: GEFITINIB
     Indication: NON-SMALL CELL LUNG CANCER
     Route: 048
  3. PHENOBARBITAL. [Interacting]
     Active Substance: PHENOBARBITAL
     Indication: EPILEPSY
     Route: 048
     Dates: start: 1995
  4. LEVEMIR FLEX [Concomitant]
     Indication: DIABETES MELLITUS
     Route: 058
     Dates: start: 20160317
  5. NOVOLOG [Concomitant]
     Active Substance: INSULIN ASPART
     Dosage: DAILY
     Route: 058
     Dates: start: 20160317
  6. IRESSA [Interacting]
     Active Substance: GEFITINIB
     Indication: NON-SMALL CELL LUNG CANCER
     Route: 048

REACTIONS (4)
  - Road traffic accident [Unknown]
  - Pelvic fracture [Unknown]
  - Drug interaction [Unknown]
  - Malignant neoplasm progression [Not Recovered/Not Resolved]

NARRATIVE: CASE EVENT DATE: 20160317
